FAERS Safety Report 6434330-9 (Version None)
Quarter: 2009Q4

REPORT INFORMATION
  Report Type: 
  Country: None (occurrence: None)
  Receive Date: 20091110
  Receipt Date: 20081023
  Transmission Date: 20100525
  Serious: No
  Sender: FDA-Public Use
  Company Number: US-ASTRAZENECA-2009UW16007

PATIENT
  Age: 65 Year
  Sex: Female

DRUGS (6)
  1. PRILOSEC OTC [Suspect]
     Indication: DYSPEPSIA
     Dosage: 1 TABLET, 1 /DAY FOR 1 DAY
     Route: 048
     Dates: start: 20081023, end: 20081023
  2. PRILOSEC OTC [Suspect]
     Indication: GASTROOESOPHAGEAL REFLUX DISEASE
     Dosage: 1 TABLET, 1 /DAY FOR 1 DAY
     Route: 048
     Dates: start: 20081023, end: 20081023
  3. PRILOSEC OTC [Suspect]
     Indication: ERUCTATION
     Dosage: 1 TABLET, 1 /DAY FOR 1 DAY
     Route: 048
     Dates: start: 20081023, end: 20081023
  4. PRILOSEC OTC [Suspect]
     Route: 048
     Dates: start: 20050101
  5. PRILOSEC OTC [Suspect]
     Route: 048
     Dates: start: 20050101
  6. PRILOSEC OTC [Suspect]
     Route: 048
     Dates: start: 20050101

REACTIONS (5)
  - INAPPROPRIATE SCHEDULE OF DRUG ADMINISTRATION [None]
  - INCORRECT DRUG ADMINISTRATION DURATION [None]
  - OFF LABEL USE [None]
  - RASH ERYTHEMATOUS [None]
  - URTICARIA [None]
